FAERS Safety Report 9612542 (Version 2)
Quarter: 2014Q1

REPORT INFORMATION
  Report Type: Spontaneous
  Country: US (occurrence: US)
  Receive Date: 20131010
  Receipt Date: 20140303
  Transmission Date: 20141002
  Serious: Yes (Hospitalization, Disabling)
  Sender: FDA-Public Use
  Company Number: US-PFIZER INC-2013290870

PATIENT
  Age: 63 Year
  Sex: Male
  Weight: 124 kg

DRUGS (5)
  1. LIPITOR [Suspect]
     Indication: BLOOD CHOLESTEROL INCREASED
     Dosage: UNK
     Dates: start: 2010
  2. CLONIDINE [Concomitant]
     Indication: HYPERTENSION
     Dosage: UNK, 3 TIMES DAILY
  3. LISINOPRIL [Concomitant]
     Indication: HYPERTENSION
     Dosage: UNK, DAILY
  4. ATENOLOL [Concomitant]
     Indication: HYPERTENSION
     Dosage: UNK, DAILY
  5. PREDNISOLONE [Concomitant]
     Indication: GLAUCOMA
     Dosage: UNK

REACTIONS (3)
  - Visual impairment [Not Recovered/Not Resolved]
  - Dyspnoea [Not Recovered/Not Resolved]
  - Respiratory tract congestion [Not Recovered/Not Resolved]
